FAERS Safety Report 7909204-4 (Version None)
Quarter: 2011Q4

REPORT INFORMATION
  Report Type: 
  Country: None (occurrence: None)
  Receive Date: 20111111
  Receipt Date: 20110909
  Transmission Date: 20120403
  Serious: No
  Sender: FDA-Public Use
  Company Number: US-GLAXOSMITHKLINE-A0944086A

PATIENT
  Sex: Female

DRUGS (1)
  1. COREG [Suspect]
     Indication: PRODUCT USED FOR UNKNOWN INDICATION
     Dosage: 6.25MG UNKNOWN
     Route: 065
     Dates: start: 20090929

REACTIONS (1)
  - WEIGHT INCREASED [None]
